FAERS Safety Report 8541399-4 (Version None)
Quarter: 2012Q3

REPORT INFORMATION
  Report Type: 
  Country: None (occurrence: None)
  Receive Date: 20120726
  Receipt Date: 20120720
  Transmission Date: 20120928
  Serious: Yes (Hospitalization)
  Sender: FDA-Public Use
  Company Number: US-B.I. PHARMACEUTICALS,INC./RIDGEFIELD-2012-BP-04686BP

PATIENT
  Sex: Female

DRUGS (9)
  1. MIRALAX [Concomitant]
     Indication: CONSTIPATION
     Dates: start: 20100101
  2. MAGNESIUM HYDROXIDE TAB [Concomitant]
     Indication: ABDOMINAL DISCOMFORT
     Dates: start: 20100101
  3. METAMUCIL-2 [Concomitant]
     Indication: CONSTIPATION
     Dates: start: 20100101
  4. DIOVAN [Concomitant]
     Indication: BLOOD PRESSURE
  5. CALCIUM CARBONATE [Concomitant]
     Indication: ABDOMINAL DISCOMFORT
     Dates: start: 20100101
  6. SPIRIVA [Suspect]
     Indication: CHRONIC OBSTRUCTIVE PULMONARY DISEASE
     Dosage: 18 MCG
     Route: 055
     Dates: start: 20111001
  7. SPIRIVA [Suspect]
     Indication: DYSPNOEA
  8. ASPIRIN [Concomitant]
     Indication: ANTICOAGULANT THERAPY
     Dosage: 81 MG
     Route: 048
     Dates: start: 20100101
  9. LIBRAX [Concomitant]
     Indication: ABDOMINAL DISCOMFORT
     Dates: start: 20100101

REACTIONS (5)
  - DYSPNOEA [None]
  - ARRHYTHMIA [None]
  - LUNG DISORDER [None]
  - PULMONARY OEDEMA [None]
  - SINUSITIS [None]
